FAERS Safety Report 16589747 (Version 1)
Quarter: 2019Q3

REPORT INFORMATION
  Report Type: Other
  Country: US (occurrence: US)
  Receive Date: 20190718
  Receipt Date: 20190718
  Transmission Date: 20191004
  Serious: No
  Sender: FDA-Public Use
  Company Number: US-SWEDISH ORPHAN BIOVITRUM-2019US0833

PATIENT
  Sex: Female

DRUGS (13)
  1. METOPROLOL. [Concomitant]
     Active Substance: METOPROLOL
  2. KINERET [Suspect]
     Active Substance: ANAKINRA
     Indication: RHEUMATOID ARTHRITIS
     Route: 058
  3. GABAPENTIN. [Concomitant]
     Active Substance: GABAPENTIN
  4. SINGULAIR [Concomitant]
     Active Substance: MONTELUKAST SODIUM
  5. MULTAQ [Concomitant]
     Active Substance: DRONEDARONE
  6. LISINOPRIL. [Concomitant]
     Active Substance: LISINOPRIL
  7. ELIQUIS [Concomitant]
     Active Substance: APIXABAN
  8. PROBIOTIC VSL [Concomitant]
  9. WELCHOL [Concomitant]
     Active Substance: COLESEVELAM HYDROCHLORIDE
  10. VITAMIN B12 [Concomitant]
     Active Substance: CYANOCOBALAMIN
  11. AMLODIPINE [Concomitant]
     Active Substance: AMLODIPINE BESYLATE
  12. FOLIC ACID. [Concomitant]
     Active Substance: FOLIC ACID
  13. VITAMIN D2 [Concomitant]
     Active Substance: ERGOCALCIFEROL

REACTIONS (4)
  - Injection site pain [Unknown]
  - Peripheral swelling [Unknown]
  - Pain in extremity [Unknown]
  - Arthralgia [Unknown]
